FAERS Safety Report 4868837-2 (Version None)
Quarter: 2005Q4

REPORT INFORMATION
  Report Type: 
  Country: None (occurrence: None)
  Receive Date: 20051223
  Receipt Date: 20051216
  Transmission Date: 20060501
  Serious: Yes (Hospitalization, Other)
  Sender: FDA-Public Use
  Company Number: 2005166343

PATIENT
  Age: 53 Year
  Sex: Male

DRUGS (2)
  1. ZOLOFT [Suspect]
     Indication: ILL-DEFINED DISORDER
     Dosage: 100 MG (50 MG)
     Dates: end: 20051201
  2. ASPIRIN [Concomitant]

REACTIONS (3)
  - ADRENAL DISORDER [None]
  - HYPONATRAEMIA [None]
  - PSYCHOMOTOR RETARDATION [None]
